FAERS Safety Report 9513187 (Version 2)
Quarter: 2013Q3

REPORT INFORMATION
  Report Type: Spontaneous
  Country: US (occurrence: US)
  Receive Date: 20130910
  Receipt Date: 20130910
  Transmission Date: 20140515
  Serious: No
  Sender: FDA-Public Use
  Company Number: US-PFIZER INC-2013222938

PATIENT
  Age: 57 Year
  Sex: Female

DRUGS (12)
  1. XELJANZ [Suspect]
     Indication: RHEUMATOID ARTHRITIS
     Dosage: 5 MG, 2X/DAY
     Dates: start: 20130808
  2. BISMUTH [Concomitant]
     Dosage: 524 MG, AS NEEDED (262 MG 2 TABS AS NEEDED 8 TIMES A DAY)
  3. LISINOPRIL [Concomitant]
     Dosage: 20 MG, 1X/DAY
  4. BENTYL [Concomitant]
     Dosage: 20 MG, 4X/DAY
  5. CIPRO [Concomitant]
     Dosage: 500 MG, 2X/DAY (500 MG EVERY 12 HRS WITH FOOD)
  6. OMEPRAZOLE DR [Concomitant]
     Dosage: 40 MG, 1X/DAY
  7. MEDROL [Concomitant]
     Dosage: 4 MG, AS DIRECTED
  8. CALCIUM 600 + VITAMIN D [Concomitant]
     Dosage: 600/400 MG UNIT TABLET 1 TABLET WITH FOOD TWICE DAILY
  9. CENTRUM [Concomitant]
     Dosage: UNK
  10. BENEFIBER PLUS CALCIUM [Concomitant]
     Dosage: UNK
  11. KEPPRA [Concomitant]
     Dosage: 750 MG
  12. SULFASALAZINE DR [Concomitant]
     Dosage: 500 MG

REACTIONS (2)
  - Arthralgia [Unknown]
  - Headache [Unknown]
